FAERS Safety Report 10179380 (Version 1)
Quarter: 2014Q2

REPORT INFORMATION
  Report Type: Spontaneous
  Country: US (occurrence: None)
  Receive Date: 20140515
  Receipt Date: 20140515
  Transmission Date: 20141212
  Serious: Yes (Hospitalization)
  Sender: FDA-Public Use
  Company Number: UTC-048484

PATIENT
  Age: 70 Year
  Sex: Male

DRUGS (2)
  1. TYVASO(0.6 MILLIGRAM/MILLILITERS, AEROSAL FOR INHALATION)(TREPROSTINIL SODIUM) [Suspect]
     Route: 055
     Dates: start: 20140207
  2. TRACLEER(BOSENTAN) [Concomitant]

REACTIONS (1)
  - Chronic obstructive pulmonary disease [None]
